FAERS Safety Report 7452322-8 (Version None)
Quarter: 2011Q2

REPORT INFORMATION
  Report Type: 
  Country: None (occurrence: None)
  Receive Date: 20110502
  Receipt Date: 20070613
  Transmission Date: 20111010
  Serious: Yes (Death, Hospitalization, Other)
  Sender: FDA-Public Use
  Company Number: US-BAYER-200711672BWH

PATIENT
  Age: 79 Year
  Sex: Male
  Weight: 77.098 kg

DRUGS (30)
  1. LOVENOX [Concomitant]
     Dosage: 80 MG, BID
     Dates: start: 20040923
  2. NITRO-BID [Concomitant]
     Dosage: UNK
  3. AMBIEN [Concomitant]
     Dosage: 5 MG
     Dates: start: 20040923
  4. HEPARIN [Concomitant]
     Dosage: UNK
     Dates: start: 20040928
  5. MANNITOL [Concomitant]
     Dosage: UNK
     Dates: start: 20040928
  6. PROTAMINE SULFATE [Concomitant]
  7. ALBUMINAR [ALBUMEN] [Concomitant]
     Dosage: UNK
     Dates: start: 20040928
  8. TAGAMET [Concomitant]
     Dosage: 300 MG
     Dates: start: 20040923
  9. CELEBREX [Concomitant]
     Dosage: UNK
     Dates: start: 20030101
  10. RED BLOOD CELLS [Concomitant]
     Dosage: 5 UNITS
     Dates: start: 20040928
  11. ALLOPURINOL [Concomitant]
     Dosage: 300 MG X 1 DOSE
     Dates: start: 20040927
  12. VERAPAMIL [Concomitant]
     Dosage: UNK
     Dates: start: 20040928
  13. ZOCOR [Concomitant]
     Dosage: 20 MG
     Route: 048
     Dates: start: 20040923
  14. NITRO-BID [Concomitant]
     Dosage: UNK
     Dates: start: 20040923
  15. PLAVIX [Concomitant]
     Dosage: 75 MG, QD
  16. VERSED [Concomitant]
  17. TRASYLOL [Suspect]
     Indication: CORONARY ARTERY BYPASS
     Dosage: 1 ML TEST DOSE
     Route: 042
     Dates: start: 20040928, end: 20040928
  18. HYDROXYZINE [Concomitant]
     Dosage: 50 MG
     Dates: start: 20040923
  19. VALIUM [Concomitant]
     Dosage: 10 MG X 1 DOSE
     Dates: start: 20040926
  20. NITROGLYCERIN [Concomitant]
     Dosage: UNK
     Dates: start: 20040928
  21. FRESH FROZEN PLASMA [Concomitant]
     Dosage: 2 UNITS
     Dates: start: 20040928
  22. PROCARDIA [Concomitant]
     Dosage: 10 MG
     Dates: start: 20040923
  23. AMIODARONE [Concomitant]
     Dosage: UNK
  24. LOPRESSOR [Concomitant]
     Dosage: 25 MG, BID
  25. OMNIPAQUE 140 [Concomitant]
     Dosage: UNK
     Dates: start: 20040909
  26. CARDIOLITE [Concomitant]
     Dosage: UNK
     Dates: start: 20040924
  27. ZINACEF [Concomitant]
     Dosage: 1.5 GM
     Route: 042
     Dates: start: 20040927
  28. VANCOMYCIN [Concomitant]
     Dosage: UNK
     Dates: start: 20040928
  29. ASPIRIN [Concomitant]
     Dosage: 81 MG, QD
  30. STEROID ANTIBACTERIALS [Concomitant]
     Route: 030

REACTIONS (16)
  - RENAL IMPAIRMENT [None]
  - ANXIETY [None]
  - MOOD ALTERED [None]
  - RENAL FAILURE [None]
  - INJURY [None]
  - DEATH [None]
  - ADVERSE EVENT [None]
  - STRESS [None]
  - RENAL FAILURE CHRONIC [None]
  - RENAL INJURY [None]
  - UNEVALUABLE EVENT [None]
  - PAIN [None]
  - DEPRESSION [None]
  - MULTI-ORGAN FAILURE [None]
  - FEAR [None]
  - EMOTIONAL DISTRESS [None]
